FAERS Safety Report 15284425 (Version 1)
Quarter: 2018Q3

REPORT INFORMATION
  Report Type: Spontaneous
  Country: US (occurrence: US)
  Receive Date: 20180801
  Receipt Date: 20180801
  Transmission Date: 20181010
  Serious: Yes (Hospitalization)
  Sender: FDA-Public Use
  Company Number: None

PATIENT
  Age: 27 Year
  Sex: Male

DRUGS (3)
  1. LEVETIRACETAM 500MG [Concomitant]
     Active Substance: LEVETIRACETAM
  2. ONDANSETRON 4MG [Concomitant]
     Active Substance: ONDANSETRON
  3. HUMIRA [Suspect]
     Active Substance: ADALIMUMAB
     Indication: RHEUMATOID ARTHRITIS
     Route: 058
     Dates: start: 20180710

REACTIONS (1)
  - Seizure [None]

NARRATIVE: CASE EVENT DATE: 20180731
